FAERS Safety Report 5012283-8 (Version None)
Quarter: 2006Q2

REPORT INFORMATION
  Report Type: 
  Country: None (occurrence: None)
  Receive Date: 20060524
  Receipt Date: 20060520
  Transmission Date: 20061013
  Serious: Yes (Hospitalization)
  Sender: FDA-Public Use
  Company Number: 222101

PATIENT
  Age: 72 Year
  Sex: Female

DRUGS (4)
  1. AVASTIN [Suspect]
     Indication: COLORECTAL CANCER
     Dosage: 425 MG, Q3W, INTRAVENOUS
     Route: 042
     Dates: start: 20060126, end: 20060206
  2. CAPECITABINE (CAPECITABINE) [Suspect]
     Indication: COLORECTAL CANCER
     Dosage: 1650 MG, BID, ORAL
     Route: 048
     Dates: start: 20060126
  3. OXALIPLATIN (OXALIPLATIN) [Suspect]
     Indication: COLORECTAL CANCER
     Dosage: 215 MG, Q3W, INTRAVENOUS
     Route: 042
     Dates: start: 20060126, end: 20060126
  4. ONDANSETRON [Concomitant]

REACTIONS (1)
  - PYREXIA [None]
